FAERS Safety Report 7892331-8 (Version None)
Quarter: 2011Q4

REPORT INFORMATION
  Report Type: 
  Country: None (occurrence: None)
  Receive Date: 20111103
  Receipt Date: 20111103
  Transmission Date: 20120403
  Serious: No
  Sender: FDA-Public Use
  Company Number: None

PATIENT
  Age: 62 Year
  Sex: Male
  Weight: 83.8 kg

DRUGS (1)
  1. VANCOMYCIN [Suspect]
     Dosage: 1 GM BID IV
     Route: 042
     Dates: start: 20110517, end: 20110523

REACTIONS (1)
  - THROMBOCYTOPENIA [None]
